FAERS Safety Report 21669988 (Version 1)
Quarter: 2022Q4

REPORT INFORMATION
  Report Type: Spontaneous
  Country: FR (occurrence: FR)
  Receive Date: 20221201
  Receipt Date: 20221201
  Transmission Date: 20230113
  Serious: Yes (Life-Threatening)
  Sender: FDA-Public Use
  Company Number: None

PATIENT
  Age: 6 Week
  Sex: Male
  Weight: 2.98 kg

DRUGS (11)
  1. DIAZEPAM [Suspect]
     Active Substance: DIAZEPAM
     Indication: Seizure
     Route: 065
     Dates: start: 20221105, end: 20221105
  2. AMOXICILLIN [Suspect]
     Active Substance: AMOXICILLIN
     Indication: Antibiotic therapy
     Route: 042
     Dates: start: 20221107
  3. NALBUPHINE HYDROCHLORIDE [Suspect]
     Active Substance: NALBUPHINE HYDROCHLORIDE
     Indication: Analgesic therapy
     Dosage: CHLORHYDRATE DE NALBUPHINE
     Route: 042
     Dates: start: 20221104
  4. CEFOTAXIME SODIUM [Suspect]
     Active Substance: CEFOTAXIME SODIUM
     Indication: Antibiotic therapy
     Dosage: CEFOTAXIME SODIQUE
     Route: 042
     Dates: start: 20221101
  5. BACLOFEN [Suspect]
     Active Substance: BACLOFEN
     Indication: Wrong drug
     Dosage: BACLOFENE ZENTIVA 10 MG, COMPRIME
     Route: 048
     Dates: start: 20221110, end: 20221110
  6. FUROSEMIDE [Concomitant]
     Active Substance: FUROSEMIDE
     Indication: Product used for unknown indication
  7. KEPPRA [Concomitant]
     Active Substance: LEVETIRACETAM
     Indication: Product used for unknown indication
  8. ACETAMINOPHEN [Concomitant]
     Active Substance: ACETAMINOPHEN
     Indication: Product used for unknown indication
  9. SODIUM BICARBONATE [Concomitant]
     Active Substance: SODIUM BICARBONATE
     Indication: Product used for unknown indication
  10. PANTOPRAZOLE [Concomitant]
     Active Substance: PANTOPRAZOLE
     Indication: Product used for unknown indication
  11. SODIUM BENZOATE [Concomitant]
     Active Substance: SODIUM BENZOATE
     Indication: Product used for unknown indication
     Dosage: BENZOATE DE SODIUM

REACTIONS (2)
  - Encephalopathy [Recovered/Resolved]
  - Product confusion [Recovered/Resolved]

NARRATIVE: CASE EVENT DATE: 20221110
